FAERS Safety Report 5265049-8 (Version None)
Quarter: 2007Q1

REPORT INFORMATION
  Report Type: 
  Country: None (occurrence: None)
  Receive Date: 20070314
  Receipt Date: 20070302
  Transmission Date: 20070707
  Serious: Yes (Hospitalization)
  Sender: FDA-Public Use
  Company Number: SEWYE874405MAR07

PATIENT
  Sex: Male

DRUGS (2)
  1. ENBREL [Suspect]
     Indication: DRUG USE FOR UNKNOWN INDICATION
     Route: 058
     Dates: start: 20040501, end: 20061001
  2. ENBREL [Suspect]
     Route: 058
     Dates: start: 20061201

REACTIONS (1)
  - PNEUMONIA [None]
